FAERS Safety Report 19132222 (Version 2)
Quarter: 2021Q2

REPORT INFORMATION
  Report Type: Report from Study
  Country: BR (occurrence: BR)
  Receive Date: 20210414
  Receipt Date: 20210603
  Transmission Date: 20210717
  Serious: Yes (Death, Hospitalization, Other)
  Sender: FDA-Public Use
  Company Number: BR-AMGEN-BRASL2021055254

PATIENT
  Age: 36 Year
  Sex: Male

DRUGS (6)
  1. PLASIL [METOCLOPRAMIDE] [Concomitant]
     Active Substance: METOCLOPRAMIDE
     Dosage: UNK
  2. XARELTO [Concomitant]
     Active Substance: RIVAROXABAN
     Indication: EMBOLISM
     Dosage: UNK
  3. VECTIBIX [Suspect]
     Active Substance: PANITUMUMAB
     Indication: COLON CANCER
     Dosage: UNK, EVERY 15 DAYS
     Route: 042
     Dates: start: 20210226
  4. DRAMIN [Concomitant]
     Active Substance: DIMENHYDRINATE
     Dosage: UNK
  5. VECTIBIX [Suspect]
     Active Substance: PANITUMUMAB
     Indication: METASTASES TO PERITONEUM
  6. NAUSEDRON [Concomitant]
     Active Substance: ONDANSETRON HYDROCHLORIDE
     Dosage: UNK

REACTIONS (6)
  - Asthenia [Unknown]
  - Hypophagia [Unknown]
  - Nausea [Unknown]
  - Embolism [Fatal]
  - Pneumonia [Fatal]
  - Vomiting [Unknown]

NARRATIVE: CASE EVENT DATE: 2021
